FAERS Safety Report 21600758 (Version 2)
Quarter: 2022Q4

REPORT INFORMATION
  Report Type: Spontaneous
  Country: CN (occurrence: CN)
  Receive Date: 20221116
  Receipt Date: 20221123
  Transmission Date: 20230113
  Serious: No
  Sender: FDA-Public Use
  Company Number: CN-NOVOPROD-979509

PATIENT
  Age: 13 Year
  Sex: Male
  Weight: 35.5 kg

DRUGS (1)
  1. NORDITROPIN [Suspect]
     Active Substance: SOMATROPIN
     Indication: Short stature
     Dosage: 1.875 MG, QD
     Route: 058
     Dates: start: 20221031, end: 20221102

REACTIONS (4)
  - Pyrexia [Unknown]
  - Dizziness [Unknown]
  - Oropharyngeal pain [Unknown]
  - Rash [Unknown]

NARRATIVE: CASE EVENT DATE: 20221102
